FAERS Safety Report 4481951-9 (Version None)
Quarter: 2004Q4

REPORT INFORMATION
  Report Type: 
  Country: None (occurrence: None)
  Receive Date: 20041020
  Receipt Date: 20040929
  Transmission Date: 20050328
  Serious: Yes (Other)
  Sender: FDA-Public Use
  Company Number: GBT041001675

PATIENT
  Sex: Female
  Weight: 68 kg

DRUGS (8)
  1. GEMCITABINE HYDROCHLORIDE-IV (GEMCITABINE) [Suspect]
     Indication: BREAST CANCER
     Dosage: 2175 MG
  2. PACLITAXEL [Suspect]
     Indication: BREAST CANCER
     Dosage: 304 MG
  3. EPIRUBICIN [Suspect]
     Indication: BREAST CANCER
     Dosage: 156 MG
     Dates: end: 20040629
  4. CYCLOPHOSPHAMIDE [Suspect]
     Indication: BREAST CANCER
     Dosage: 1040 MG
     Dates: end: 20040629
  5. GRANISETRON [Concomitant]
  6. DEXAMETHASONE [Concomitant]
  7. RANITIDINE [Concomitant]
  8. CHLORPHENAMINE [Concomitant]

REACTIONS (3)
  - INJECTION SITE DISCOMFORT [None]
  - INJECTION SITE PAIN [None]
  - VEIN PAIN [None]
